FAERS Safety Report 25904019 (Version 1)
Quarter: 2025Q4

REPORT INFORMATION
  Report Type: Spontaneous
  Country: GB (occurrence: GB)
  Receive Date: 20251010
  Receipt Date: 20251010
  Transmission Date: 20260117
  Serious: Yes (Other)
  Sender: AUROBINDO
  Company Number: GB-MHRA-MED-202510011707227920-TJDGB

PATIENT
  Age: 72 Year
  Sex: Male
  Weight: 80 kg

DRUGS (1)
  1. TERBINAFINE [Suspect]
     Active Substance: TERBINAFINE
     Indication: Fungal test
     Dosage: UNK
     Route: 065
     Dates: start: 20250501, end: 20250901

REACTIONS (2)
  - Paralysis [Not Recovered/Not Resolved]
  - Medication error [Unknown]

NARRATIVE: CASE EVENT DATE: 20250901
